FAERS Safety Report 7980641-5 (Version None)
Quarter: 2011Q4

REPORT INFORMATION
  Report Type: 
  Country: None (occurrence: None)
  Receive Date: 20111214
  Receipt Date: 20111208
  Transmission Date: 20120403
  Serious: Yes (Death, Life-Threatening, Hospitalization)
  Sender: FDA-Public Use
  Company Number: FR-ELI_LILLY_AND_COMPANY-FR201112002524

PATIENT
  Age: 74 Year
  Sex: Female
  Weight: 65 kg

DRUGS (8)
  1. HEPARIN [Concomitant]
     Dosage: UNK, CONTINUOUS
     Route: 042
  2. ATORVASTATIN CALCIUM [Concomitant]
     Indication: CORONARY ARTERY DISEASE
     Dosage: 80 MG, QD
     Route: 048
  3. EFFIENT [Suspect]
     Dosage: 10 MG, QD
     Route: 048
     Dates: start: 20110701, end: 20110701
  4. HEPARIN [Concomitant]
     Indication: ANGINA PECTORIS
     Dosage: 5000 IU, UNK
  5. BISOPROLOL FUMARATE [Concomitant]
     Indication: CORONARY ARTERY DISEASE
     Dosage: 2.5 MG, QD
     Route: 048
  6. ASPIRIN [Concomitant]
     Indication: ACUTE CORONARY SYNDROME
     Dosage: 75 MG, QD
     Route: 048
  7. RAMIPRIL [Concomitant]
     Indication: CORONARY ARTERY DISEASE
     Dosage: 2.5 MG, QD
     Route: 048
  8. EFFIENT [Suspect]
     Indication: ACUTE CORONARY SYNDROME
     Dosage: 60 MG, SINGLE LOADING DOSE
     Route: 048
     Dates: start: 20110701, end: 20110701

REACTIONS (3)
  - CORONARY ARTERY RESTENOSIS [None]
  - IN-STENT ARTERIAL RESTENOSIS [None]
  - HAEMORRHAGIC STROKE [None]
